FAERS Safety Report 24760060 (Version 1)
Quarter: 2024Q4

REPORT INFORMATION
  Report Type: Spontaneous
  Country: US (occurrence: US)
  Receive Date: 20241220
  Receipt Date: 20241220
  Transmission Date: 20250115
  Serious: No
  Sender: VERTEX
  Company Number: US-VERTEX PHARMACEUTICALS-2024-019419

PATIENT

DRUGS (1)
  1. TRIKAFTA [Suspect]
     Active Substance: ELEXACAFTOR\IVACAFTOR\TEZACAFTOR
     Indication: Cystic fibrosis
     Dosage: UNKNOWN DOSAGE REGIMEN
     Route: 048

REACTIONS (10)
  - Fatigue [Unknown]
  - Pyrexia [Not Recovered/Not Resolved]
  - Middle insomnia [Unknown]
  - Feeling abnormal [Unknown]
  - Irritability [Unknown]
  - Decreased appetite [Unknown]
  - Mood altered [Unknown]
  - Cough [Not Recovered/Not Resolved]
  - Blood glucose decreased [Unknown]
  - Rhinorrhoea [Unknown]
